FAERS Safety Report 19443525 (Version 4)
Quarter: 2022Q1

REPORT INFORMATION
  Report Type: Report from Study
  Country: BR (occurrence: BR)
  Receive Date: 20210621
  Receipt Date: 20220317
  Transmission Date: 20220423
  Serious: Yes (Hospitalization, Other)
  Sender: FDA-Public Use
  Company Number: BR-NOVARTISPH-PHHY2018BR198487

PATIENT
  Age: 32 Year
  Sex: Female
  Weight: 60 kg

DRUGS (4)
  1. COSENTYX [Suspect]
     Active Substance: SECUKINUMAB
     Indication: Psoriatic arthropathy
     Dosage: 300 MG, QMO
     Route: 058
     Dates: start: 20180827
  2. COSENTYX [Suspect]
     Active Substance: SECUKINUMAB
     Dosage: 300 MG, QMO
     Route: 058
     Dates: start: 20200917
  3. COSENTYX [Suspect]
     Active Substance: SECUKINUMAB
     Dosage: 300 MG, QMO
     Route: 058
     Dates: start: 20210520
  4. COSENTYX [Suspect]
     Active Substance: SECUKINUMAB
     Dosage: UNK
     Route: 065
     Dates: start: 20211020

REACTIONS (8)
  - Kidney infection [Recovering/Resolving]
  - Pyelonephritis [Unknown]
  - Urinary tract infection [Recovered/Resolved]
  - Nodule [Recovering/Resolving]
  - Mass [Recovering/Resolving]
  - Urinary tract infection [Recovered/Resolved]
  - Urinary tract infection [Recovering/Resolving]
  - Pain [Recovered/Resolved]

NARRATIVE: CASE EVENT DATE: 20181101
